FAERS Safety Report 8320069-1 (Version None)
Quarter: 2012Q2

REPORT INFORMATION
  Report Type: 
  Country: None (occurrence: None)
  Receive Date: 20120428
  Receipt Date: 20120423
  Transmission Date: 20120825
  Serious: Yes (Other)
  Sender: FDA-Public Use
  Company Number: JP-ACCORD-012967

PATIENT
  Age: 1 Year
  Sex: Female

DRUGS (8)
  1. ETOPOSIDE [Suspect]
     Indication: TRANSPLANT
     Dosage: 30 MG/KG, DAY-5
  2. TACROLIMUS [Suspect]
     Indication: PROPHYLAXIS AGAINST GRAFT VERSUS HOST DISEASE
     Dosage: DAY 1, 3, 6 AND 11
  3. ATG RABBIT [Suspect]
     Indication: TRANSPLANT
     Dosage: 5 MG/KG, DAY-12,-11
  4. URSODIOL [Concomitant]
     Dosage: 100 MG/KG/DAY
  5. CYCLOPHOSPHAMIDE [Suspect]
     Indication: TRANSPLANT
     Dosage: 120 MG/KG,DAY-4,-3
  6. HEPARIN [Concomitant]
     Dosage: 100 IU/KG/DAY
  7. METHOTREXATE [Suspect]
     Indication: PROPHYLAXIS AGAINST GRAFT VERSUS HOST DISEASE
     Dosage: DAY 1, 3, 6 AND 11
  8. BUSULFAN [Suspect]
     Indication: TRANSPLANT
     Dosage: 19.2 MG/KG,DAY-9 APPROX -6

REACTIONS (4)
  - THROMBOTIC MICROANGIOPATHY [None]
  - SEPSIS [None]
  - OFF LABEL USE [None]
  - HUMAN HERPESVIRUS 6 INFECTION [None]
